FAERS Safety Report 26068401 (Version 1)
Quarter: 2025Q4

REPORT INFORMATION
  Report Type: Spontaneous
  Country: EU (occurrence: EU)
  Receive Date: 20251120
  Receipt Date: 20251120
  Transmission Date: 20260118
  Serious: Yes (Other)
  Sender: SAMSUNG BIOEPIS
  Company Number: None

PATIENT
  Age: 52 Year
  Sex: Female
  Weight: 83 kg

DRUGS (1)
  1. INFLIXIMAB [Suspect]
     Active Substance: INFLIXIMAB
     Indication: Crohn^s disease
     Dates: start: 20201120, end: 20201120

REACTIONS (8)
  - Dyspnoea [Recovered/Resolved]
  - Face oedema [Recovered/Resolved]
  - Lividity [Recovered/Resolved]
  - Hyperhidrosis [Recovered/Resolved]
  - Blood pressure decreased [Recovered/Resolved]
  - Headache [Recovered/Resolved]
  - Abdominal pain [Recovered/Resolved]
  - Gastrointestinal hypermotility [Recovered/Resolved]

NARRATIVE: CASE EVENT DATE: 20201120
